FAERS Safety Report 16196788 (Version 1)
Quarter: 2019Q2

REPORT INFORMATION
  Report Type: Spontaneous
  Country: US (occurrence: US)
  Receive Date: 20190415
  Receipt Date: 20190415
  Transmission Date: 20190711
  Serious: No
  Sender: FDA-Public Use
  Company Number: US-BAYER-2019-075650

PATIENT
  Age: 39 Year
  Sex: Female

DRUGS (2)
  1. MIRENA [Suspect]
     Active Substance: LEVONORGESTREL
  2. MIRENA [Suspect]
     Active Substance: LEVONORGESTREL
     Dosage: 20 MCG/24HR, CONT
     Route: 015
     Dates: start: 20181010, end: 20190312

REACTIONS (4)
  - Device expulsion [Recovered/Resolved]
  - Menorrhagia [None]
  - Urine odour abnormal [None]
  - Abdominal pain lower [None]

NARRATIVE: CASE EVENT DATE: 2019
